FAERS Safety Report 4756649-X (Version None)
Quarter: 2005Q3

REPORT INFORMATION
  Report Type: 
  Country: None (occurrence: None)
  Receive Date: 20050830
  Receipt Date: 20050822
  Transmission Date: 20060218
  Serious: Yes (Other)
  Sender: FDA-Public Use
  Company Number: CA-GLAXOSMITHKLINE-A0571306A

PATIENT
  Age: 39 Year
  Sex: Male
  Weight: 104.5 kg

DRUGS (3)
  1. ZYBAN [Suspect]
     Dosage: 150MG PER DAY
     Route: 048
     Dates: start: 20050803
  2. NICOTINE [Suspect]
     Route: 062
  3. VALIUM [Concomitant]

REACTIONS (6)
  - DIZZINESS [None]
  - DRY MOUTH [None]
  - FACIAL BONES FRACTURE [None]
  - HEADACHE [None]
  - INSOMNIA [None]
  - SYNCOPE [None]
